FAERS Safety Report 17149088 (Version 1)
Quarter: 2019Q4

REPORT INFORMATION
  Report Type: Spontaneous
  Country: US (occurrence: US)
  Receive Date: 20191213
  Receipt Date: 20191213
  Transmission Date: 20200122
  Serious: Yes (Other)
  Sender: FDA-Public Use
  Company Number: US-TEVA-2019-US-1151466

PATIENT
  Age: 54 Year
  Sex: Female

DRUGS (13)
  1. ALBUTEROL. [Concomitant]
     Active Substance: ALBUTEROL
  2. FLOVENT [Concomitant]
     Active Substance: FLUTICASONE PROPIONATE
  3. CALCIUM [Concomitant]
     Active Substance: CALCIUM
  4. BENADRYL [Concomitant]
     Active Substance: DIPHENHYDRAMINE HYDROCHLORIDE
  5. SINGULAIR [Concomitant]
     Active Substance: MONTELUKAST SODIUM
  6. OXYCODONE AND ACETAMINOPHEN [Concomitant]
     Active Substance: ACETAMINOPHEN\OXYCODONE HYDROCHLORIDE
  7. TYLENOL [Concomitant]
     Active Substance: ACETAMINOPHEN
  8. ZONISAMIDE. [Concomitant]
     Active Substance: ZONISAMIDE
  9. GLUCOS/CHOND [Concomitant]
  10. HYOSCYAMINE. [Concomitant]
     Active Substance: HYOSCYAMINE
  11. LIDOCAINE. [Concomitant]
     Active Substance: LIDOCAINE
  12. COPAXONE [Suspect]
     Active Substance: GLATIRAMER ACETATE
     Indication: MULTIPLE SCLEROSIS
     Route: 058
     Dates: start: 20180202
  13. EXCEDRIN [Concomitant]
     Active Substance: ACETAMINOPHEN\ASPIRIN\CAFFEINE

REACTIONS (2)
  - Injection site reaction [Not Recovered/Not Resolved]
  - Thyroidectomy [Unknown]

NARRATIVE: CASE EVENT DATE: 201905
